FAERS Safety Report 4480379-5 (Version None)
Quarter: 2004Q4

REPORT INFORMATION
  Report Type: 
  Country: None (occurrence: None)
  Receive Date: 20041018
  Receipt Date: 20040930
  Transmission Date: 20050328
  Serious: Yes (Death, Other)
  Sender: FDA-Public Use
  Company Number: 2004IC000545

PATIENT
  Age: 70 Year
  Sex: Male

DRUGS (12)
  1. FLUOROURACIL [Suspect]
     Indication: COLORECTAL CANCER METASTATIC
     Dosage: SEE IMAGE
     Route: 040
     Dates: end: 20000520
  2. FLUOROURACIL [Suspect]
     Indication: COLORECTAL CANCER METASTATIC
     Dosage: SEE IMAGE
     Route: 040
     Dates: start: 20000311
  3. OXALIPLATIN (OXALIPLATIN) [Suspect]
     Indication: COLORECTAL CANCER METASTATIC
     Dosage: 85 MG/M**2; INTRAVENOUS
     Route: 042
  4. LEUCOVORIN CALCIUM [Suspect]
     Indication: COLORECTAL CANCER METASTATIC
     Dosage: 150 MG/M**2; INTRAVENOUS
     Route: 042
  5. MAGNESIUM OXIDE [Concomitant]
  6. ATIVAN [Concomitant]
  7. DIPHEIDOL [Concomitant]
  8. TENORMIN [Concomitant]
  9. TRAMAL [Concomitant]
  10. PRIMPERAN INJ [Concomitant]
  11. METOCLOPRAIMIDE [Concomitant]
  12. PARACETAMOL [Concomitant]

REACTIONS (1)
  - NEUROTOXICITY [None]
